FAERS Safety Report 6111255-X (Version None)
Quarter: 2009Q1

REPORT INFORMATION
  Report Type: 
  Country: None (occurrence: None)
  Receive Date: 20090311
  Receipt Date: 20090302
  Transmission Date: 20090719
  Serious: Yes (Other)
  Sender: FDA-Public Use
  Company Number: US-AVENTIS-200911690US

PATIENT
  Sex: Male

DRUGS (6)
  1. LANTUS [Suspect]
     Route: 058
     Dates: start: 20060101
  2. OPTICLIK (INSULIN INJECTION PEN) [Suspect]
     Dates: start: 20060101
  3. HYDROCHLOROTHIAZIDE [Concomitant]
     Dosage: DOSE: UNK
  4. CATAPRES                           /00171101/ [Concomitant]
     Dosage: DOSE: UNK
  5. METFORMIN HCL [Concomitant]
     Dosage: DOSE: UNK
  6. MINERAL TAB [Concomitant]
     Dosage: DOSE: UNK

REACTIONS (6)
  - HYDROCEPHALUS [None]
  - INJECTION SITE IRRITATION [None]
  - INTERVERTEBRAL DISC PROTRUSION [None]
  - NECK PAIN [None]
  - ROAD TRAFFIC ACCIDENT [None]
  - ROTATOR CUFF SYNDROME [None]
